FAERS Safety Report 18285020 (Version 1)
Quarter: 2020Q3

REPORT INFORMATION
  Report Type: Spontaneous
  Country: DE (occurrence: DE)
  Receive Date: 20200919
  Receipt Date: 20200919
  Transmission Date: 20201103
  Serious: Yes (Hospitalization, Other)
  Sender: FDA-Public Use
  Company Number: DE-AUROBINDO-AUR-APL-2020-048576

PATIENT
  Age: 62 Year
  Sex: Female

DRUGS (3)
  1. AMPICILLIN AND SULBACTAM [Suspect]
     Active Substance: AMPICILLIN SODIUM\SULBACTAM SODIUM
     Indication: PNEUMONIA
     Dosage: UNK
     Route: 065
  2. AMPICILLIN AND SULBACTAM [Suspect]
     Active Substance: AMPICILLIN SODIUM\SULBACTAM SODIUM
     Indication: UPPER RESPIRATORY TRACT INFECTION
  3. AZITHROMYCIN ANHYDROUS. [Suspect]
     Active Substance: AZITHROMYCIN ANHYDROUS
     Indication: PNEUMONIA
     Dosage: UNK
     Route: 065

REACTIONS (18)
  - Upper respiratory tract infection [Unknown]
  - Depressed level of consciousness [Recovering/Resolving]
  - Aphasia [Recovered/Resolved]
  - White matter lesion [Unknown]
  - Monoparesis [Recovered/Resolved]
  - Meningoencephalitis bacterial [Unknown]
  - Meningitis bacterial [Unknown]
  - Central nervous system lesion [Unknown]
  - Hemiparesis [Unknown]
  - Brain oedema [Unknown]
  - Meningism [Unknown]
  - General physical health deterioration [Unknown]
  - Inflammation [Unknown]
  - Acute disseminated encephalomyelitis [Unknown]
  - Pneumonia [Unknown]
  - Pyrexia [Unknown]
  - Gait disturbance [Unknown]
  - Somnolence [Unknown]
